FAERS Safety Report 16933682 (Version 1)
Quarter: 2019Q4

REPORT INFORMATION
  Report Type: Spontaneous
  Country: GB (occurrence: GB)
  Receive Date: 20191018
  Receipt Date: 20191018
  Transmission Date: 20200122
  Serious: Yes (Other)
  Sender: FDA-Public Use
  Company Number: GB-TEVA-2019-GB-1122947

PATIENT
  Age: 5 Year
  Sex: Female
  Weight: 19 kg

DRUGS (2)
  1. AMOXICILLIN. [Concomitant]
     Active Substance: AMOXICILLIN
     Dosage: 15 ML
     Dates: start: 20190918
  2. TRIMETHOPRIM. [Suspect]
     Active Substance: TRIMETHOPRIM
     Dosage: 50MG/5ML. 10 ML
     Route: 048
     Dates: start: 20190916

REACTIONS (1)
  - Malaise [Recovered/Resolved]

NARRATIVE: CASE EVENT DATE: 20190918
